FAERS Safety Report 4617468-8 (Version None)
Quarter: 2005Q1

REPORT INFORMATION
  Report Type: 
  Country: None (occurrence: None)
  Receive Date: 20050324
  Receipt Date: 20050311
  Transmission Date: 20050727
  Serious: Yes (Death, Hospitalization)
  Sender: FDA-Public Use
  Company Number: CA-BRISTOL-MYERS SQUIBB COMPANY-12894564

PATIENT
  Age: 84 Year
  Sex: Female

DRUGS (1)
  1. COUMADIN [Suspect]
     Indication: PROPHYLAXIS
     Dates: start: 20050129

REACTIONS (3)
  - CONTUSION [None]
  - DEATH [None]
  - HAEMORRHAGE [None]
